FAERS Safety Report 21730244 (Version 2)
Quarter: 2023Q1

REPORT INFORMATION
  Report Type: Report from Study
  Country: DE (occurrence: None)
  Receive Date: 20221214
  Receipt Date: 20230112
  Transmission Date: 20230418
  Serious: Yes (Life-Threatening, Hospitalization)
  Sender: FDA-Public Use
  Company Number: DE-ROCHE-3233595

PATIENT
  Age: 59 Year
  Sex: Male
  Weight: 77.9 kg

DRUGS (4)
  1. ATEZOLIZUMAB [Suspect]
     Active Substance: ATEZOLIZUMAB
     Indication: Neuroendocrine carcinoma
     Dosage: LAST DOSE ADMINISTERED BEFORE ONSET DATE OF SAE WAS ON 17/NOV/2022
     Route: 065
     Dates: start: 20221117
  2. CISPLATIN [Suspect]
     Active Substance: CISPLATIN
     Indication: Neuroendocrine carcinoma
     Dosage: LAST DOSE ADMINISTERED BEFORE ONSET OF SAE WAS GIVEN ON 17/DEC/2022, 535 MG/ AUC
     Route: 065
     Dates: start: 20221117
  3. CARBOPLATIN [Suspect]
     Active Substance: CARBOPLATIN
     Indication: Neuroendocrine carcinoma
     Dosage: LAST DOSE ADMINISTERED BEFORE ONSET OF SAE WAS GIVEN ON 17/DEC/2022, 535 MG/ AUC
     Route: 065
     Dates: start: 20221117
  4. ETOPOSIDE [Suspect]
     Active Substance: ETOPOSIDE
     Indication: Neuroendocrine carcinoma
     Dosage: LAST DOSE ADMINISTERED BEFORE SAE WAS ON 20/NOV/2022
     Route: 065
     Dates: start: 20221118

REACTIONS (1)
  - Pneumonitis [Recovered/Resolved]

NARRATIVE: CASE EVENT DATE: 20221201
